FAERS Safety Report 11203548 (Version 2)
Quarter: 2016Q1

REPORT INFORMATION
  Report Type: Spontaneous
  Country: US (occurrence: US)
  Receive Date: 20150619
  Receipt Date: 20160219
  Transmission Date: 20160525
  Serious: Yes (Hospitalization)
  Sender: FDA-Public Use
  Company Number: PHEH2015US011414

PATIENT
  Sex: Female

DRUGS (8)
  1. VIVELLE-DOT [Suspect]
     Active Substance: ESTRADIOL
     Indication: PRODUCT USED FOR UNKNOWN INDICATION
     Dosage: 0.05 MG, UNK
     Route: 062
  2. MINIVELLE [Concomitant]
     Active Substance: ESTRADIOL
     Indication: PRODUCT USED FOR UNKNOWN INDICATION
     Dosage: 0.037 MG, UNK
     Route: 065
  3. MULTI VITAMIN [Concomitant]
     Active Substance: VITAMINS
     Indication: PRODUCT USED FOR UNKNOWN INDICATION
     Route: 065
  4. LEVOTHYROXINE SODIUM. [Concomitant]
     Active Substance: LEVOTHYROXINE SODIUM
     Indication: PRODUCT USED FOR UNKNOWN INDICATION
     Route: 065
  5. SYNTHROID [Concomitant]
     Active Substance: LEVOTHYROXINE SODIUM
     Indication: PRODUCT USED FOR UNKNOWN INDICATION
     Route: 065
  6. UCERIS [Concomitant]
     Active Substance: BUDESONIDE
     Indication: CROHN^S DISEASE
     Dosage: UNK
     Route: 065
  7. PROMETRIUM [Concomitant]
     Active Substance: PROGESTERONE
     Indication: PRODUCT USED FOR UNKNOWN INDICATION
     Dosage: 100 MG, UNK
     Route: 065
  8. VIVELLE-DOT [Suspect]
     Active Substance: ESTRADIOL
     Dosage: 0.037 MG, UNK
     Route: 062
     Dates: start: 201501

REACTIONS (14)
  - Cerebrovascular accident [Unknown]
  - Dizziness [Unknown]
  - Feeling abnormal [Unknown]
  - Muscle spasms [Unknown]
  - Weight decreased [Unknown]
  - Stress [Unknown]
  - Groin pain [Unknown]
  - Memory impairment [Unknown]
  - Diarrhoea [Unknown]
  - Blood test abnormal [Unknown]
  - Vision blurred [Unknown]
  - Hypotension [Unknown]
  - Thyroid function test abnormal [Unknown]
  - Vaginal haemorrhage [Unknown]
